FAERS Safety Report 6443434-6 (Version None)
Quarter: 2009Q4

REPORT INFORMATION
  Report Type: 
  Country: None (occurrence: None)
  Receive Date: 20091117
  Receipt Date: 20091105
  Transmission Date: 20100525
  Serious: Yes (Other)
  Sender: FDA-Public Use
  Company Number: US-PFIZER INC-2009281365

PATIENT
  Sex: Male
  Weight: 68.027 kg

DRUGS (7)
  1. SUTENT [Suspect]
     Indication: THYROID CANCER
     Dosage: 50 MG,
     Dates: start: 20090101
  2. PREDNISONE [Concomitant]
     Indication: HERPES ZOSTER
     Dosage: UNK
     Route: 047
     Dates: start: 20091103
  3. PREDNISONE [Concomitant]
     Indication: KERATITIS
  4. ACETAMINOPHEN AND OXYCODONE HCL [Concomitant]
     Indication: EYE PAIN
     Dosage: UNK
     Dates: start: 20091022
  5. NEXIUM [Concomitant]
     Dosage: 40 MG, 1X/DAY
  6. SYNTHROID [Concomitant]
     Indication: THYROID DISORDER
     Dates: start: 20000101
  7. VITAMIN D [Concomitant]

REACTIONS (3)
  - HERPES ZOSTER OPHTHALMIC [None]
  - IMMUNOSUPPRESSION [None]
  - PALMAR-PLANTAR ERYTHRODYSAESTHESIA SYNDROME [None]
